FAERS Safety Report 8135170-5 (Version None)
Quarter: 2012Q1

REPORT INFORMATION
  Report Type: 
  Country: None (occurrence: None)
  Receive Date: 20120214
  Receipt Date: 20120209
  Transmission Date: 20120608
  Serious: No
  Sender: FDA-Public Use
  Company Number: US-PFIZER INC-2012005971

PATIENT
  Sex: Female

DRUGS (5)
  1. EFFEXOR [Suspect]
     Indication: DEPRESSION
  2. EFFEXOR [Suspect]
     Indication: ANXIETY
  3. VENLAFAXINE HCL [Suspect]
     Indication: DEPRESSION
  4. EFFEXOR XR [Suspect]
     Dosage: UNK
  5. VENLAFAXINE HCL [Suspect]
     Indication: ANXIETY
     Dosage: UNK
     Dates: start: 20110101, end: 20110101

REACTIONS (9)
  - DEPRESSION [None]
  - BLISTER [None]
  - HYPERTENSION [None]
  - ANXIETY [None]
  - DRUG INEFFECTIVE [None]
  - GASTRIC DISORDER [None]
  - URTICARIA [None]
  - PRURITUS [None]
  - RENAL DISORDER [None]
